FAERS Safety Report 18686701 (Version 1)
Quarter: 2020Q4

REPORT INFORMATION
  Report Type: Report from Study
  Country: CA (occurrence: CA)
  Receive Date: 20201230
  Receipt Date: 20201230
  Transmission Date: 20210114
  Serious: Yes (Hospitalization, Other)
  Sender: FDA-Public Use
  Company Number: CA-JNJFOC-20201222931

PATIENT
  Age: 66 Year
  Sex: Female
  Weight: 76 kg

DRUGS (2)
  1. SIMPONI [Suspect]
     Active Substance: GOLIMUMAB
  2. SIMPONI [Suspect]
     Active Substance: GOLIMUMAB
     Indication: CROHN^S DISEASE
     Route: 058
     Dates: start: 20200611, end: 202012

REACTIONS (5)
  - Off label use [Unknown]
  - Wound infection [Not Recovered/Not Resolved]
  - Product use in unapproved indication [Unknown]
  - Crohn^s disease [Not Recovered/Not Resolved]
  - Vascular operation [Unknown]

NARRATIVE: CASE EVENT DATE: 20200611
